FAERS Safety Report 6252255-9 (Version None)
Quarter: 2009Q2

REPORT INFORMATION
  Report Type: 
  Country: None (occurrence: None)
  Receive Date: 20090629
  Receipt Date: 20090619
  Transmission Date: 20091009
  Serious: Yes (Other)
  Sender: FDA-Public Use
  Company Number: 306218

PATIENT
  Age: 16 Year
  Sex: Male

DRUGS (5)
  1. METHOTREXATE [Suspect]
     Indication: PRECURSOR B-LYMPHOBLASTIC LYMPHOMA
  2. CYCLOPHOSPHAMIDE [Suspect]
     Indication: PRECURSOR B-LYMPHOBLASTIC LYMPHOMA
  3. ADRIAMYCIN PFS [Suspect]
     Indication: PRECURSOR B-LYMPHOBLASTIC LYMPHOMA
  4. ONCOVIN [Suspect]
     Indication: PRECURSOR B-LYMPHOBLASTIC LYMPHOMA
  5. PREDNISONE [Suspect]
     Indication: PRECURSOR B-LYMPHOBLASTIC LYMPHOMA

REACTIONS (1)
  - THYMUS ENLARGEMENT [None]
